FAERS Safety Report 15473095 (Version 2)
Quarter: 2019Q2

REPORT INFORMATION
  Report Type: Spontaneous
  Country: JP (occurrence: JP)
  Receive Date: 20181008
  Receipt Date: 20190418
  Transmission Date: 20190711
  Serious: Yes (Hospitalization)
  Sender: FDA-Public Use
  Company Number: JP-ACTELION-A-CH2017-163749

PATIENT
  Age: 64 Year
  Sex: Male
  Weight: 45.4 kg

DRUGS (26)
  1. UPTRAVI [Suspect]
     Active Substance: SELEXIPAG
     Dosage: 0.9 MG, BID
     Route: 048
     Dates: start: 20180106, end: 20180112
  2. TAKECAB [Concomitant]
     Active Substance: VONOPRAZAN FUMURATE
     Indication: GASTROOESOPHAGEAL REFLUX DISEASE
     Dosage: 10 MG, UNK
     Dates: end: 20180730
  3. DAIPHEN [Concomitant]
     Active Substance: SULFAMETHOXAZOLE\TRIMETHOPRIM
     Dosage: 0.5 MG, UNK
     Dates: start: 20171220
  4. UPTRAVI [Suspect]
     Active Substance: SELEXIPAG
     Indication: PULMONARY ARTERIAL HYPERTENSION
     Dosage: 0.5 MG, BID
     Route: 048
     Dates: start: 20171019, end: 20171020
  5. UPTRAVI [Suspect]
     Active Substance: SELEXIPAG
     Dosage: 0.3 MG, BID
     Route: 048
     Dates: start: 20171006, end: 20171012
  6. UPTRAVI [Suspect]
     Active Substance: SELEXIPAG
     Dosage: 0.4 MG, BID
     Route: 048
     Dates: start: 20171013, end: 20171018
  7. UPTRAVI [Suspect]
     Active Substance: SELEXIPAG
     Dosage: 0.7 MG, BID
     Route: 048
     Dates: start: 20171212, end: 20171215
  8. UPTRAVI [Suspect]
     Active Substance: SELEXIPAG
     Dosage: 1.2 MG, BID
     Route: 048
     Dates: start: 20180310, end: 20180504
  9. UPTRAVI [Suspect]
     Active Substance: SELEXIPAG
     Dosage: 0.8 MG, BID
     Route: 048
     Dates: start: 20171216, end: 20180105
  10. UPTRAVI [Suspect]
     Active Substance: SELEXIPAG
     Dosage: 1.4 MG, BID
     Route: 048
     Dates: start: 20180518, end: 20180524
  11. GASMOTIN [Concomitant]
     Active Substance: MOSAPRIDE CITRATE
     Indication: GASTROOESOPHAGEAL REFLUX DISEASE
  12. UPTRAVI [Suspect]
     Active Substance: SELEXIPAG
     Dosage: 0.6 MG, BID
     Route: 048
     Dates: start: 20171124, end: 20171211
  13. OPSUMIT [Concomitant]
     Active Substance: MACITENTAN
     Indication: PULMONARY ARTERIAL HYPERTENSION
     Dosage: 10 MG, QD
     Route: 048
     Dates: start: 20170626
  14. UPTRAVI [Suspect]
     Active Substance: SELEXIPAG
     Dosage: 1.1 MG, BID
     Route: 048
     Dates: start: 20180303, end: 20180309
  15. SYMBICORT [Concomitant]
     Active Substance: BUDESONIDE\FORMOTEROL FUMARATE DIHYDRATE
     Indication: ASTHMA
     Dosage: UNK
  16. UPTRAVI [Suspect]
     Active Substance: SELEXIPAG
     Dosage: 0.2 MG, BID
     Route: 048
     Dates: start: 20170929, end: 20171005
  17. UPTRAVI [Suspect]
     Active Substance: SELEXIPAG
     Dosage: 1.3 MG, BID
     Route: 048
     Dates: start: 20180504, end: 20180517
  18. ADEMPAS [Suspect]
     Active Substance: RIOCIGUAT
     Indication: PULMONARY ARTERIAL HYPERTENSION
     Dosage: 7.5 MG, QD
     Route: 048
     Dates: start: 20170615
  19. GASMOTIN [Concomitant]
     Active Substance: MOSAPRIDE CITRATE
     Indication: PULMONARY ARTERIAL HYPERTENSION
     Dosage: 15 MG, UNK
  20. DIGOXIN. [Concomitant]
     Active Substance: DIGOXIN
     Indication: CARDIAC FAILURE
     Dosage: 0.062 MG, UNK
     Dates: start: 20170705
  21. UPTRAVI [Suspect]
     Active Substance: SELEXIPAG
     Dosage: 0.4 MG, BID
     Route: 048
     Dates: start: 20171021, end: 20171123
  22. UPTRAVI [Suspect]
     Active Substance: SELEXIPAG
     Dosage: 1.0 MG, BID
     Route: 048
     Dates: start: 20180113, end: 20180302
  23. UPTRAVI [Suspect]
     Active Substance: SELEXIPAG
     Dosage: 1.3 MG, BID
     Route: 048
     Dates: start: 20180525, end: 20181115
  24. UPTRAVI [Suspect]
     Active Substance: SELEXIPAG
     Dosage: 1.4 MG, BID
     Route: 048
     Dates: start: 20181116, end: 20190117
  25. UPTRAVI [Suspect]
     Active Substance: SELEXIPAG
     Dosage: 1.5 MG, BID
     Route: 048
     Dates: start: 20190118
  26. RABEPRAZOLE [Concomitant]
     Active Substance: RABEPRAZOLE
     Indication: GASTROOESOPHAGEAL REFLUX DISEASE
     Dosage: 10 MG, QD
     Dates: start: 20180730

REACTIONS (2)
  - Diarrhoea [Recovered/Resolved]
  - Interstitial lung disease [Recovering/Resolving]

NARRATIVE: CASE EVENT DATE: 20171020
